FAERS Safety Report 6135097-4 (Version None)
Quarter: 2009Q1

REPORT INFORMATION
  Report Type: 
  Country: None (occurrence: None)
  Receive Date: 20090327
  Receipt Date: 20090316
  Transmission Date: 20090719
  Serious: Yes (Death)
  Sender: FDA-Public Use
  Company Number: US-JNJFOC-20090305841

PATIENT
  Sex: Female

DRUGS (4)
  1. TYLENOL [Suspect]
     Route: 045
  2. TYLENOL [Suspect]
     Indication: DRUG ABUSE
     Route: 045
  3. HEROIN [Suspect]
     Indication: DRUG ABUSE
     Route: 045
  4. COCAINE [Suspect]
     Indication: DRUG ABUSE
     Route: 045

REACTIONS (2)
  - MULTIPLE DRUG OVERDOSE [None]
  - SUBSTANCE ABUSE [None]
